FAERS Safety Report 7929267-X (Version None)
Quarter: 2011Q4

REPORT INFORMATION
  Report Type: 
  Country: None (occurrence: None)
  Receive Date: 20111121
  Receipt Date: 20111114
  Transmission Date: 20120403
  Serious: Yes (Hospitalization)
  Sender: FDA-Public Use
  Company Number: US-BIOGENIDEC-2011BI041190

PATIENT
  Age: 57 Year
  Sex: Female

DRUGS (2)
  1. AVONEX [Suspect]
     Indication: MULTIPLE SCLEROSIS
     Route: 030
     Dates: start: 20050613
  2. AVONEX [Suspect]
     Route: 030

REACTIONS (3)
  - PANCREATITIS [None]
  - GALLBLADDER OPERATION [None]
  - POST PROCEDURAL COMPLICATION [None]
